FAERS Safety Report 23923743 (Version 1)
Quarter: 2024Q2

REPORT INFORMATION
  Report Type: Other
  Country: US (occurrence: None)
  Receive Date: 20240531
  Receipt Date: 20240531
  Transmission Date: 20240716
  Serious: Yes (Other)
  Sender: FDA-Public Use
  Company Number: US-ROCHE-3571318

PATIENT

DRUGS (14)
  1. RITUXIMAB [Suspect]
     Active Substance: RITUXIMAB
     Indication: B-cell type acute leukaemia
     Dosage: ON DAYS 2 AND 8
     Route: 042
  2. CYCLOPHOSPHAMIDE [Suspect]
     Active Substance: CYCLOPHOSPHAMIDE
     Indication: B-cell type acute leukaemia
     Dosage: DAYS 1-3 (6 TOTAL DOSES)
     Route: 042
  3. DEXAMETHASONE [Suspect]
     Active Substance: DEXAMETHASONE
     Indication: B-cell type acute leukaemia
     Dosage: (MAX 20 MG/DAY) DAYS 1-4 AND 11-14
     Route: 042
  4. VINCRISTINE [Suspect]
     Active Substance: VINCRISTINE
     Indication: B-cell type acute leukaemia
     Dosage: (MAX 2 MG/DOSE) DAYS 1 AND 8
     Route: 042
  5. PEGFILGRASTIM [Suspect]
     Active Substance: PEGFILGRASTIM
     Indication: B-cell type acute leukaemia
     Dosage: (MAX 6 MG) DAY 4
     Route: 058
  6. METHOTREXATE [Suspect]
     Active Substance: METHOTREXATE
     Indication: B-cell type acute leukaemia
     Dosage: (50 MG/M2 OVER 2 HOURS THEN 200 MG/M2 OVER 22 HOURS) DAY 1
     Route: 042
  7. CYTARABINE [Suspect]
     Active Substance: CYTARABINE
     Indication: B-cell type acute leukaemia
     Dosage: 0.5 GRAMS/M2, EVERY 12 HOURS, ON DAYS 2 AND 3 (4 TOTAL DOSES)
     Route: 042
  8. INOTUZUMAB OZOGAMICIN [Suspect]
     Active Substance: INOTUZUMAB OZOGAMICIN
     Indication: B-cell type acute leukaemia
     Dosage: CYCLE 1: ON DAY 8
     Route: 042
  9. INOTUZUMAB OZOGAMICIN [Suspect]
     Active Substance: INOTUZUMAB OZOGAMICIN
     Dosage: CYCLE 1: ON DAY 15
     Route: 042
  10. INOTUZUMAB OZOGAMICIN [Suspect]
     Active Substance: INOTUZUMAB OZOGAMICIN
     Dosage: CYCLE 2:ON DAYS 2 AND 8
     Route: 042
  11. BLINATUMOMAB [Suspect]
     Active Substance: BLINATUMOMAB
     Indication: B-cell type acute leukaemia
     Dosage: CYCLE 1:(MAX 9 MCG/DAY) ON DAYS 14-17
     Route: 042
  12. BLINATUMOMAB [Suspect]
     Active Substance: BLINATUMOMAB
     Dosage: CYCLE 1:(MAX 28 MCG/DAY) ON DAYS 18-29
     Route: 042
  13. BLINATUMOMAB [Suspect]
     Active Substance: BLINATUMOMAB
     Dosage: CYCLE 2 AND AFTER: (MAX 28 MCG/DAY) ON DAYS 4-28
     Route: 042
  14. HYDROCORTISONE [Suspect]
     Active Substance: HYDROCORTISONE
     Indication: B-cell type acute leukaemia
     Route: 065

REACTIONS (8)
  - Febrile neutropenia [Unknown]
  - Sepsis [Unknown]
  - Alanine aminotransferase increased [Unknown]
  - Hyperglycaemia [Unknown]
  - International normalised ratio increased [Unknown]
  - Neuropathy peripheral [Unknown]
  - Blood fibrinogen decreased [Unknown]
  - Constipation [Unknown]
